FAERS Safety Report 9823346 (Version 1)
Quarter: 2014Q1

REPORT INFORMATION
  Report Type: Spontaneous
  Country: US (occurrence: US)
  Receive Date: 20140116
  Receipt Date: 20140116
  Transmission Date: 20141002
  Serious: Yes (Other)
  Sender: FDA-Public Use
  Company Number: US-ABBVIE-14P-163-1187673-00

PATIENT
  Age: 65 Year
  Sex: Male
  Weight: 108.96 kg

DRUGS (1)
  1. LUPRON DEPOT [Suspect]
     Indication: PROSTATE CANCER
     Dosage: 1 DOSE RECEIVED ONLY
     Route: 030
     Dates: start: 20120112, end: 20120112

REACTIONS (6)
  - Prostatectomy [Recovered/Resolved]
  - Paraesthesia [Not Recovered/Not Resolved]
  - Fatigue [Not Recovered/Not Resolved]
  - Hot flush [Recovering/Resolving]
  - Depression [Unknown]
  - Malaise [Unknown]
